FAERS Safety Report 14805662 (Version 3)
Quarter: 2018Q2

REPORT INFORMATION
  Report Type: Report from Study
  Country: US (occurrence: US)
  Receive Date: 20180425
  Receipt Date: 20180504
  Transmission Date: 20180711
  Serious: Yes (Hospitalization)
  Sender: FDA-Public Use
  Company Number: US-JNJFOC-20180424667

PATIENT
  Age: 17 Year
  Sex: Female
  Weight: 76.6 kg

DRUGS (5)
  1. TRAZODONE [Concomitant]
     Active Substance: TRAZODONE HYDROCHLORIDE
     Route: 065
  2. REMICADE [Suspect]
     Active Substance: INFLIXIMAB
     Indication: INFLAMMATORY BOWEL DISEASE
     Route: 042
     Dates: start: 20170503
  3. ESCITALOPRAM [Concomitant]
     Active Substance: ESCITALOPRAM OXALATE
     Route: 065
  4. BUDESONIDE. [Concomitant]
     Active Substance: BUDESONIDE
     Route: 065
  5. 5-ASA [Concomitant]
     Active Substance: MESALAMINE
     Route: 048

REACTIONS (2)
  - Hallucination [Recovered/Resolved with Sequelae]
  - Depression [Recovered/Resolved with Sequelae]

NARRATIVE: CASE EVENT DATE: 20180410
